FAERS Safety Report 24434215 (Version 1)
Quarter: 2024Q4

REPORT INFORMATION
  Report Type: Spontaneous
  Country: US (occurrence: US)
  Receive Date: 20241014
  Receipt Date: 20241014
  Transmission Date: 20250115
  Serious: No
  Sender: SANDOZ
  Company Number: US-SANDOZ-SDZ2024US085303

PATIENT
  Sex: Male

DRUGS (4)
  1. AZITHROMYCIN [Interacting]
     Active Substance: AZITHROMYCIN
     Indication: Lung transplant rejection
     Dosage: UNK
     Route: 065
  2. AMIKACIN [Interacting]
     Active Substance: AMIKACIN
     Indication: Lung transplant rejection
     Dosage: UNK
     Route: 065
  3. MYCOPHENOLATE MOFETIL [Interacting]
     Active Substance: MYCOPHENOLATE MOFETIL
     Indication: Lung transplant rejection
     Dosage: UNK
     Route: 065
  4. TACROLIMUS [Interacting]
     Active Substance: TACROLIMUS
     Indication: Lung transplant rejection
     Dosage: UNK
     Route: 065

REACTIONS (2)
  - Glomerular filtration rate abnormal [Unknown]
  - Drug interaction [Unknown]
